FAERS Safety Report 8714155 (Version 2)
Quarter: 2013Q1

REPORT INFORMATION
  Report Type: Spontaneous
  Country: US (occurrence: US)
  Receive Date: 20120808
  Receipt Date: 20130120
  Transmission Date: 20140127
  Serious: No
  Sender: FDA-Public Use
  Company Number: US-ASTRAZENECA-2012SE53746

PATIENT
  Age: 43 Year
  Sex: Female
  Weight: 75.8 kg

DRUGS (7)
  1. SEROQUEL [Suspect]
     Indication: SLEEP DISORDER
     Route: 048
     Dates: start: 2002
  2. SEROQUEL [Suspect]
     Indication: BIPOLAR I DISORDER
     Route: 048
     Dates: start: 2002
  3. LISINOPRIL [Suspect]
     Indication: BLOOD PRESSURE ABNORMAL
     Route: 048
     Dates: start: 2008
  4. TRAZODONE [Concomitant]
  5. VALIUM [Concomitant]
     Dosage: AS REQUIRED
  6. AG PRO MULTIVITAMINS [Concomitant]
  7. SYNTHROID [Concomitant]
     Indication: THYROID DISORDER
     Dates: start: 2009

REACTIONS (7)
  - Thyroid disorder [Unknown]
  - Hypertension [Unknown]
  - Malaise [Unknown]
  - Insomnia [Unknown]
  - Drug effect delayed [Unknown]
  - Therapeutic response unexpected [Unknown]
  - Drug dose omission [Unknown]
